FAERS Safety Report 6037248-9 (Version None)
Quarter: 2009Q1

REPORT INFORMATION
  Report Type: 
  Country: None (occurrence: None)
  Receive Date: 20090114
  Receipt Date: 20090109
  Transmission Date: 20090719
  Serious: Yes (Hospitalization)
  Sender: FDA-Public Use
  Company Number: A0718183A

PATIENT
  Age: 44 Year
  Sex: Male
  Weight: 93.2 kg

DRUGS (9)
  1. AVANDIA [Suspect]
     Route: 048
     Dates: start: 19990830, end: 20040204
  2. AMARYL [Concomitant]
  3. ALPRAZOLAM [Concomitant]
  4. SURMONTIL [Concomitant]
  5. GLYBURIDE [Concomitant]
  6. ALBUTEROL [Concomitant]
  7. WELLBUTRIN [Concomitant]
  8. ZOLOFT [Concomitant]
  9. AMITRIPTYLINE HCL [Concomitant]

REACTIONS (2)
  - HEART INJURY [None]
  - MYOCARDIAL INFARCTION [None]
